FAERS Safety Report 10545976 (Version 1)
Quarter: 2014Q4

REPORT INFORMATION
  Report Type: Spontaneous
  Country: IT (occurrence: IT)
  Receive Date: 20141027
  Receipt Date: 20141027
  Transmission Date: 20150529
  Serious: Yes (Other)
  Sender: FDA-Public Use
  Company Number: IT-BAXTER-2014BAX062667

PATIENT
  Age: 7 Year
  Sex: Male
  Weight: 28 kg

DRUGS (3)
  1. HOLOXAN [Suspect]
     Active Substance: IFOSFAMIDE
     Indication: EXTRA-OSSEOUS EWING^S SARCOMA
     Route: 042
     Dates: start: 20140808, end: 20140922
  2. ACQUA PER PREPARAZIONI INIETTABILI BAXTER [Suspect]
     Active Substance: WATER
     Indication: EXTRA-OSSEOUS EWING^S SARCOMA
     Route: 042
     Dates: start: 20140808, end: 20140922
  3. ETOPOSIDE. [Suspect]
     Active Substance: ETOPOSIDE
     Indication: EXTRA-OSSEOUS EWING^S SARCOMA
     Route: 042
     Dates: start: 20140922, end: 20140924

REACTIONS (1)
  - Bronchospasm [Recovered/Resolved]

NARRATIVE: CASE EVENT DATE: 20140922
